FAERS Safety Report 5033324-8 (Version None)
Quarter: 2006Q2

REPORT INFORMATION
  Report Type: 
  Country: None (occurrence: None)
  Receive Date: 20060515
  Receipt Date: 20060222
  Transmission Date: 20061013
  Serious: No
  Sender: FDA-Public Use
  Company Number: S06-USA-00667-01

PATIENT
  Age: 72 Year
  Sex: Female

DRUGS (7)
  1. NAMENDA [Suspect]
     Indication: AMNESIA
     Dosage: 5 MG QD PO
     Route: 048
     Dates: start: 20060211, end: 20060217
  2. NAMENDA [Suspect]
     Indication: AMNESIA
     Dosage: 5 MG BID PO
     Route: 048
     Dates: start: 20060218
  3. TRICOR [Concomitant]
  4. LIPITOR [Concomitant]
  5. LOPRESSOR [Concomitant]
  6. LANOXIN [Concomitant]
  7. ASPIRIN [Concomitant]

REACTIONS (2)
  - FATIGUE [None]
  - FEELING ABNORMAL [None]
